FAERS Safety Report 25603684 (Version 1)
Quarter: 2025Q3

REPORT INFORMATION
  Report Type: Report from Study
  Country: US (occurrence: US)
  Receive Date: 20250725
  Receipt Date: 20250725
  Transmission Date: 20251020
  Serious: Yes (Other)
  Sender: TEVA
  Company Number: US-TEVA-VS-3353762

PATIENT
  Age: 74 Year
  Sex: Female

DRUGS (1)
  1. AUSTEDO [Suspect]
     Active Substance: DEUTETRABENAZINE
     Indication: Tardive dyskinesia
     Dosage: DAILY DOSE: 24 MG
     Route: 048
     Dates: start: 20250206

REACTIONS (2)
  - Urinary incontinence [Unknown]
  - Dry mouth [Unknown]

NARRATIVE: CASE EVENT DATE: 20250715
